FAERS Safety Report 7948945-X (Version None)
Quarter: 2011Q4

REPORT INFORMATION
  Report Type: 
  Country: None (occurrence: None)
  Receive Date: 20111130
  Receipt Date: 20111129
  Transmission Date: 20120403
  Serious: Yes (Death, Other)
  Sender: FDA-Public Use
  Company Number: PHHY2011NL100128

PATIENT
  Sex: Male
  Weight: 88 kg

DRUGS (1)
  1. ZOMETA [Suspect]
     Indication: METASTASES TO BONE
     Dosage: 4MG/5ML
     Route: 042
     Dates: start: 20110623, end: 20111017

REACTIONS (5)
  - NEOPLASM PROGRESSION [None]
  - DEATH [None]
  - TERMINAL STATE [None]
  - PAIN [None]
  - NEOPLASM MALIGNANT [None]
